FAERS Safety Report 10994410 (Version 1)
Quarter: 2015Q2

REPORT INFORMATION
  Report Type: Spontaneous
  Country: BR (occurrence: BR)
  Receive Date: 20150407
  Receipt Date: 20150407
  Transmission Date: 20150821
  Serious: Yes (Other)
  Sender: FDA-Public Use
  Company Number: BR-ELI_LILLY_AND_COMPANY-BR201503009263

PATIENT
  Sex: Male

DRUGS (12)
  1. LANTUS [Concomitant]
     Active Substance: INSULIN GLARGINE
     Dosage: UNK, UNKNOWN
     Route: 065
  2. LOSARTAN [Concomitant]
     Active Substance: LOSARTAN
     Indication: HYPERTENSION
     Dosage: 100 MG, UNKNOWN
     Route: 065
     Dates: start: 20090803
  3. LOSARTAN [Concomitant]
     Active Substance: LOSARTAN
     Dosage: 75 MG, UNKNOWN
     Route: 065
  4. VITAMINA D [Concomitant]
     Indication: VITAMIN D DEFICIENCY
     Dosage: UNK, UNKNOWN
     Route: 065
  5. OMEPRAZOL                          /00661201/ [Concomitant]
     Active Substance: OMEPRAZOLE
     Indication: OESOPHAGITIS
     Dosage: UNK, UNKNOWN
     Route: 065
  6. CILOSTAZOL. [Concomitant]
     Active Substance: CILOSTAZOL
     Indication: LEG AMPUTATION
     Dosage: 6 MG, BID
     Route: 065
  7. OMEPRAZOL                          /00661201/ [Concomitant]
     Active Substance: OMEPRAZOLE
     Indication: EPIGASTRIC DISCOMFORT
  8. HUMALOG [Suspect]
     Active Substance: INSULIN LISPRO
     Indication: DIABETES MELLITUS
     Dosage: UNK, OTHER
     Route: 058
     Dates: start: 20070716
  9. LOSARTAN [Concomitant]
     Active Substance: LOSARTAN
     Dosage: 50 MG, EACH MORNING
     Route: 065
  10. ZYLORIC [Concomitant]
     Active Substance: ALLOPURINOL
     Indication: BLOOD URIC ACID
     Dosage: UNK, UNKNOWN
     Route: 065
  11. ASPIRINA PREVENT [Concomitant]
     Active Substance: ASPIRIN
     Indication: COAGULOPATHY
     Dosage: UNK, UNKNOWN
     Route: 065
  12. LIPITOR [Concomitant]
     Active Substance: ATORVASTATIN CALCIUM
     Indication: BLOOD CHOLESTEROL
     Dosage: UNK, UNKNOWN
     Route: 065

REACTIONS (5)
  - Petit mal epilepsy [Recovered/Resolved]
  - Medication error [Recovered/Resolved]
  - Visual impairment [Not Recovered/Not Resolved]
  - Soliloquy [Unknown]
  - Diabetic complication [Unknown]

NARRATIVE: CASE EVENT DATE: 2009
